FAERS Safety Report 22099472 (Version 1)
Quarter: 2023Q1

REPORT INFORMATION
  Report Type: Spontaneous
  Country: DK (occurrence: DK)
  Receive Date: 20230315
  Receipt Date: 20230315
  Transmission Date: 20230418
  Serious: Yes (Life-Threatening, Hospitalization, Other)
  Sender: FDA-Public Use
  Company Number: None

PATIENT
  Age: 88 Year
  Sex: Female
  Weight: 50 kg

DRUGS (5)
  1. ELIQUIS [Suspect]
     Active Substance: APIXABAN
     Indication: Thrombosis prophylaxis
     Dosage: STRENGTH: 2.5 MG
     Route: 048
     Dates: start: 20210105, end: 20230302
  2. DIGOXIN [Concomitant]
     Active Substance: DIGOXIN
     Indication: Heart rate irregular
     Dates: start: 20210106
  3. ACETAMINOPHEN [Concomitant]
     Active Substance: ACETAMINOPHEN
     Indication: Pain
     Dates: start: 20230125
  4. METOPROLOL TARTRATE [Concomitant]
     Active Substance: METOPROLOL TARTRATE
     Indication: Heart rate irregular
     Dates: start: 20211013
  5. VAGIFEM [Concomitant]
     Active Substance: ESTRADIOL
     Indication: Hormone therapy
     Dates: start: 20180801

REACTIONS (5)
  - Mobility decreased [Unknown]
  - Cerebral haemorrhage [Not Recovered/Not Resolved]
  - Hemiparesis [Unknown]
  - Dyspnoea [Unknown]
  - Facial paresis [Unknown]

NARRATIVE: CASE EVENT DATE: 20230302
